FAERS Safety Report 21925302 (Version 1)
Quarter: 2023Q1

REPORT INFORMATION
  Report Type: Spontaneous
  Country: US (occurrence: None)
  Receive Date: 20230129
  Receipt Date: 20230129
  Transmission Date: 20230418
  Serious: Yes (Other)
  Sender: FDA-Public Use
  Company Number: None

PATIENT
  Age: 42 Year
  Sex: Male
  Weight: 89.1 kg

DRUGS (2)
  1. PAXLOVID [Suspect]
     Active Substance: NIRMATRELVIR\RITONAVIR
     Indication: COVID-19
     Dosage: FREQUENCY : TWICE A DAY;?
     Route: 048
     Dates: start: 20230128, end: 20230129
  2. Bedoyecta Injection [Concomitant]
     Dates: start: 20230116, end: 20230120

REACTIONS (3)
  - Dysgeusia [None]
  - Throat tightness [None]
  - Confusional state [None]

NARRATIVE: CASE EVENT DATE: 20230128
